FAERS Safety Report 25344365 (Version 2)
Quarter: 2025Q3

REPORT INFORMATION
  Report Type: Spontaneous
  Country: US (occurrence: US)
  Receive Date: 20250521
  Receipt Date: 20250922
  Transmission Date: 20251021
  Serious: Yes (Hospitalization, Other)
  Sender: BRISTOL-MYERS SQUIBB COMPANY
  Company Number: US-BRISTOL-MYERS SQUIBB COMPANY-2025-069663

PATIENT
  Age: 78 Year
  Sex: Male

DRUGS (2)
  1. POMALYST [Suspect]
     Active Substance: POMALIDOMIDE
     Indication: Plasma cell myeloma
     Dates: start: 202501
  2. POMALYST [Suspect]
     Active Substance: POMALIDOMIDE

REACTIONS (5)
  - Loss of consciousness [Unknown]
  - Infection [Unknown]
  - Cough [Unknown]
  - Fall [Unknown]
  - Emergency care examination [Unknown]
